FAERS Safety Report 8343563-6 (Version None)
Quarter: 2012Q2

REPORT INFORMATION
  Report Type: 
  Country: None (occurrence: None)
  Receive Date: 20120508
  Receipt Date: 20120501
  Transmission Date: 20120825
  Serious: Yes (Hospitalization)
  Sender: FDA-Public Use
  Company Number: US-AMGEN-USACT2012026069

PATIENT
  Age: 65 Year
  Sex: Female
  Weight: 107.3 kg

DRUGS (17)
  1. ZOFRAN [Concomitant]
     Dosage: 4 MG, Q6H
  2. KAY CIEL DURA-TABS [Concomitant]
     Dosage: UNK UNK, QD
     Route: 048
  3. LOVENOX [Concomitant]
     Dosage: UNK UNK, QD
     Route: 058
  4. LEVOTHYROXINE SODIUM [Concomitant]
     Dosage: 100 MUG, QD
     Route: 048
  5. COMPAZINE [Concomitant]
     Dosage: 10 MG, PRN
     Route: 048
  6. PRILOSEC [Concomitant]
     Dosage: 20 MG, QD
     Route: 048
  7. SODIUM CHLORIDE [Concomitant]
  8. PANITUMUMAB [Suspect]
     Indication: GALLBLADDER CANCER
     Dosage: 688 MG, Q2WK
     Route: 042
     Dates: start: 20120222
  9. TOPROL-XL [Concomitant]
     Dosage: 25 MG, QD
     Route: 048
  10. ROXICODONE [Concomitant]
     Dosage: UNK
  11. HYDRODIURIL [Concomitant]
     Dosage: 25 MG, QD
     Route: 048
  12. COLACE [Concomitant]
     Dosage: 100 MG, BID
     Route: 048
  13. SENOKOT [Concomitant]
     Dosage: UNK
     Route: 048
  14. OXALIPLATIN [Concomitant]
     Indication: BILE DUCT CANCER
     Dosage: 85 MG/M2, Q2WK
     Route: 041
     Dates: start: 20120222
  15. AVELOX [Concomitant]
     Dosage: 400 MG, QD
     Route: 048
  16. IBUPROFEN [Concomitant]
     Dosage: 200 MG, PRN
     Route: 048
     Dates: start: 20120419, end: 20120419
  17. GEMCITABINE [Concomitant]
     Indication: BILE DUCT CANCER
     Dosage: 1000 MG/M2, Q2WK
     Route: 041
     Dates: start: 20120222

REACTIONS (2)
  - CHOLECYSTITIS [None]
  - GALLBLADDER PERFORATION [None]
